FAERS Safety Report 6152530-2 (Version None)
Quarter: 2009Q2

REPORT INFORMATION
  Report Type: 
  Country: None (occurrence: None)
  Receive Date: 20090413
  Receipt Date: 20090403
  Transmission Date: 20091009
  Serious: Yes (Other)
  Sender: FDA-Public Use
  Company Number: IE-BAYER-200813434BNE

PATIENT
  Age: 43 Year
  Sex: Male

DRUGS (1)
  1. CIPROFLOXACIN HCL [Suspect]
     Indication: EPIDIDYMITIS
     Dosage: TOTAL DAILY DOSE: 1000 MG
     Route: 048
     Dates: start: 20081119, end: 20081124

REACTIONS (3)
  - APTYALISM [None]
  - PAROTID GLAND ENLARGEMENT [None]
  - SALIVARY GLAND ENLARGEMENT [None]
